FAERS Safety Report 19730606 (Version 1)
Quarter: 2021Q3

REPORT INFORMATION
  Report Type: Spontaneous
  Country: GB (occurrence: GB)
  Receive Date: 20210820
  Receipt Date: 20210820
  Transmission Date: 20211014
  Serious: Yes (Other)
  Sender: FDA-Public Use
  Company Number: GB-PFIZER INC-202100940512

PATIENT
  Sex: Female

DRUGS (2)
  1. CABERGOLINE. [Suspect]
     Active Substance: CABERGOLINE
     Dosage: UNK
  2. OCTREOTIDE ACETATE. [Suspect]
     Active Substance: OCTREOTIDE ACETATE
     Dosage: UNK

REACTIONS (2)
  - Drug ineffective [Unknown]
  - Hyperplasia [Unknown]
